FAERS Safety Report 21409132 (Version 1)
Quarter: 2022Q4

REPORT INFORMATION
  Report Type: Spontaneous
  Country: US (occurrence: US)
  Receive Date: 20221004
  Receipt Date: 20221004
  Transmission Date: 20230112
  Serious: Yes (Other)
  Sender: FDA-Public Use
  Company Number: US-SANOFI-01301924

PATIENT
  Age: 17 Year
  Sex: Male

DRUGS (1)
  1. DUPIXENT [Suspect]
     Active Substance: DUPILUMAB
     Indication: Eosinophilic oesophagitis
     Dosage: 300 MG

REACTIONS (5)
  - Anaphylactic reaction [Unknown]
  - Dyspnoea [Unknown]
  - Urticaria [Unknown]
  - Injection site urticaria [Unknown]
  - Pruritus [Unknown]
